FAERS Safety Report 21462727 (Version 3)
Quarter: 2022Q4

REPORT INFORMATION
  Report Type: Spontaneous
  Country: US (occurrence: US)
  Receive Date: 20221017
  Receipt Date: 20221102
  Transmission Date: 20230113
  Serious: No
  Sender: FDA-Public Use
  Company Number: US-GSKCCFUS-Case-01523352_AE-86387

PATIENT
  Age: 82 Year
  Sex: Female

DRUGS (1)
  1. ANORO ELLIPTA [Suspect]
     Active Substance: UMECLIDINIUM BROMIDE\VILANTEROL TRIFENATATE
     Indication: Product used for unknown indication
     Dosage: 62.5 MCG/MG, QD
     Dates: start: 20221007

REACTIONS (4)
  - Dyspnoea [Unknown]
  - Chest discomfort [Unknown]
  - Product dose omission issue [Unknown]
  - Product complaint [Unknown]

NARRATIVE: CASE EVENT DATE: 20221008
